FAERS Safety Report 8823703 (Version 1)
Quarter: 2012Q4

REPORT INFORMATION
  Report Type: 
  Country: US (occurrence: US)
  Receive Date: 20121003
  Receipt Date: 20121003
  Transmission Date: 20130627
  Serious: No
  Sender: FDA-Public Use
  Company Number: US-ASTRAZENECA-2012SE72812

PATIENT
  Age: 84 Year
  Sex: Male

DRUGS (1)
  1. SEROQUEL [Suspect]
     Dosage: Dose and Frequency unknown.
     Route: 048

REACTIONS (1)
  - Dementia [Unknown]
